FAERS Safety Report 4987732-1 (Version None)
Quarter: 2006Q2

REPORT INFORMATION
  Report Type: 
  Country: None (occurrence: None)
  Receive Date: 20060501
  Receipt Date: 20020524
  Transmission Date: 20061013
  Serious: Yes (Hospitalization, Other)
  Sender: FDA-Public Use
  Company Number: NZ-ABBOTT-03P-118-0244811-00

PATIENT
  Age: 42 Year
  Sex: Female

DRUGS (1)
  1. SIBUTRAMINE (REDUCTIL 15MG) [Suspect]
     Indication: BODY MASS INDEX INCREASED
     Route: 048

REACTIONS (6)
  - ATRIAL FIBRILLATION [None]
  - CIRCULATORY COLLAPSE [None]
  - ELECTROCARDIOGRAM QT PROLONGED [None]
  - SYNCOPE [None]
  - VENTRICULAR FIBRILLATION [None]
  - VENTRICULAR TACHYCARDIA [None]
